FAERS Safety Report 14387077 (Version 2)
Quarter: 2019Q3

REPORT INFORMATION
  Report Type: Spontaneous
  Country: US (occurrence: US)
  Receive Date: 20180115
  Receipt Date: 20190903
  Transmission Date: 20191004
  Serious: Yes (Other)
  Sender: FDA-Public Use
  Company Number: US-SA-2017SA176720

PATIENT
  Age: 50 Year
  Sex: Female
  Weight: 85.2 kg

DRUGS (8)
  1. TAXOTERE [Suspect]
     Active Substance: DOCETAXEL
     Dosage: 130 MG,Q3W
     Route: 042
     Dates: start: 20100222, end: 20100222
  2. MOTRIN [Concomitant]
     Active Substance: IBUPROFEN
  3. POTASSIUM [Concomitant]
     Active Substance: POTASSIUM
  4. DOXORUBICIN [Concomitant]
     Active Substance: DOXORUBICIN
     Indication: BREAST CANCER FEMALE
  5. HYDROCODONE [Concomitant]
     Active Substance: HYDROCODONE
  6. PROCHLOR [Concomitant]
  7. NEOSAR [Concomitant]
     Active Substance: CYCLOPHOSPHAMIDE
     Indication: BREAST CANCER FEMALE
  8. TAXOTERE [Suspect]
     Active Substance: DOCETAXEL
     Indication: BREAST CANCER FEMALE
     Dosage: 130 MG,Q3W
     Route: 042
     Dates: start: 20091029, end: 20091029

REACTIONS (2)
  - Alopecia [Recovering/Resolving]
  - Psychological trauma [Unknown]

NARRATIVE: CASE EVENT DATE: 201001
